FAERS Safety Report 25271845 (Version 1)
Quarter: 2025Q2

REPORT INFORMATION
  Report Type: Spontaneous
  Country: ES (occurrence: ES)
  Receive Date: 20250506
  Receipt Date: 20250506
  Transmission Date: 20250717
  Serious: Yes (Other)
  Sender: STRIDES
  Company Number: ES-STRIDES ARCOLAB LIMITED-2025SP005535

PATIENT
  Sex: Female

DRUGS (20)
  1. OLANZAPINE [Suspect]
     Active Substance: OLANZAPINE
     Indication: Psychiatric decompensation
     Route: 065
     Dates: start: 201205, end: 2012
  2. OLANZAPINE [Suspect]
     Active Substance: OLANZAPINE
     Indication: Psychotic disorder
     Route: 065
     Dates: start: 2012
  3. OLANZAPINE [Suspect]
     Active Substance: OLANZAPINE
     Route: 065
     Dates: start: 2022
  4. OLANZAPINE [Suspect]
     Active Substance: OLANZAPINE
     Route: 065
     Dates: start: 2023
  5. OLANZAPINE [Suspect]
     Active Substance: OLANZAPINE
     Route: 065
  6. HALOPERIDOL [Suspect]
     Active Substance: HALOPERIDOL
     Indication: Psychiatric decompensation
     Route: 065
  7. OLANZAPINE PAMOATE [Suspect]
     Active Substance: OLANZAPINE PAMOATE
     Indication: Psychiatric decompensation
     Route: 030
     Dates: start: 2012
  8. ZUCLOPENTHIXOL [Concomitant]
     Active Substance: ZUCLOPENTHIXOL
     Indication: Psychiatric decompensation
     Route: 030
     Dates: start: 2009, end: 2009
  9. ZUCLOPENTHIXOL [Concomitant]
     Active Substance: ZUCLOPENTHIXOL
     Route: 030
     Dates: start: 200911
  10. ZUCLOPENTHIXOL [Concomitant]
     Active Substance: ZUCLOPENTHIXOL
     Route: 065
     Dates: end: 2023
  11. CLOZAPINE [Concomitant]
     Active Substance: CLOZAPINE
     Indication: Psychiatric decompensation
     Route: 065
     Dates: start: 2009, end: 201205
  12. PALIPERIDONE PALMITATE [Concomitant]
     Active Substance: PALIPERIDONE PALMITATE
     Indication: Psychiatric decompensation
     Route: 065
     Dates: start: 201205, end: 2012
  13. PALIPERIDONE PALMITATE [Concomitant]
     Active Substance: PALIPERIDONE PALMITATE
     Route: 065
  14. LURASIDONE [Concomitant]
     Active Substance: LURASIDONE
     Indication: Psychiatric decompensation
     Route: 065
     Dates: start: 2023, end: 2023
  15. LURASIDONE [Concomitant]
     Active Substance: LURASIDONE
     Route: 065
     Dates: start: 202306
  16. ZUCLOPENTHIXOL [Concomitant]
     Active Substance: ZUCLOPENTHIXOL
     Indication: Psychiatric decompensation
     Route: 065
     Dates: start: 2023
  17. ARIPIPRAZOLE [Concomitant]
     Active Substance: ARIPIPRAZOLE
     Indication: Psychiatric decompensation
     Route: 065
     Dates: start: 202306
  18. IRON [Concomitant]
     Active Substance: IRON
     Indication: Bicytopenia
     Route: 042
     Dates: start: 2023
  19. COBALAMIN [Concomitant]
     Active Substance: COBALAMIN
     Indication: Bicytopenia
     Route: 030
     Dates: start: 2023
  20. FILGRASTIM [Concomitant]
     Active Substance: FILGRASTIM
     Indication: Bicytopenia
     Route: 065
     Dates: start: 2023

REACTIONS (4)
  - Bicytopenia [Recovering/Resolving]
  - Disease recurrence [Recovering/Resolving]
  - Treatment noncompliance [Unknown]
  - Therapy non-responder [Unknown]

NARRATIVE: CASE EVENT DATE: 20120101
